FAERS Safety Report 21752776 (Version 1)
Quarter: 2022Q4

REPORT INFORMATION
  Report Type: Spontaneous
  Country: CA (occurrence: CA)
  Receive Date: 20221220
  Receipt Date: 20221220
  Transmission Date: 20230113
  Serious: Yes (Other)
  Sender: FDA-Public Use
  Company Number: CA-AUROBINDO-AUR-APL-2022-053256

PATIENT
  Age: 68 Year
  Sex: Female

DRUGS (8)
  1. ROSUVASTATIN [Suspect]
     Active Substance: ROSUVASTATIN
     Indication: Product used for unknown indication
     Dosage: UNK UNK, ONCE A DAY
     Route: 065
  2. DICLOFENAC [Suspect]
     Active Substance: DICLOFENAC
     Indication: Product used for unknown indication
     Dosage: UNK
     Route: 065
  3. LEFLUNOMIDE [Suspect]
     Active Substance: LEFLUNOMIDE
     Indication: Rheumatoid arthritis
     Dosage: UNK, ONCE A DAY
     Route: 048
  4. ACTEMRA [Concomitant]
     Active Substance: TOCILIZUMAB
     Indication: Product used for unknown indication
     Dosage: UNK, 1 EVERY 2 WEEKS`
     Route: 058
  5. GADOLINIUM [Concomitant]
     Active Substance: GADOLINIUM
     Indication: Product used for unknown indication
     Dosage: UNK
     Route: 065
  6. METHOTREXATE [Concomitant]
     Active Substance: METHOTREXATE
     Indication: Product used for unknown indication
     Dosage: UNK
     Route: 048
  7. SULFASALAZINE [Concomitant]
     Active Substance: SULFASALAZINE
     Indication: Product used for unknown indication
     Dosage: UNK
     Route: 065
  8. XELJANZ [Concomitant]
     Active Substance: TOFACITINIB CITRATE
     Indication: Product used for unknown indication
     Dosage: UNK, TWO TIMES A DAY
     Route: 065

REACTIONS (7)
  - Tendon disorder [Unknown]
  - Psoriatic arthropathy [Unknown]
  - Polyp [Unknown]
  - Rash [Unknown]
  - Psoriasis [Unknown]
  - Drug intolerance [Unknown]
  - Drug ineffective [Unknown]
